FAERS Safety Report 13416975 (Version 1)
Quarter: 2017Q2

REPORT INFORMATION
  Report Type: Spontaneous
  Country: US (occurrence: US)
  Receive Date: 20170406
  Receipt Date: 20170406
  Transmission Date: 20170830
  Serious: No
  Sender: FDA-Public Use
  Company Number: US-SHIRE-US201707669

PATIENT
  Age: 59 Year
  Sex: Female

DRUGS (1)
  1. XIIDRA [Suspect]
     Active Substance: LIFITEGRAST
     Indication: DRY EYE
     Dosage: UNK UNK, UNKNOWN
     Route: 047
     Dates: start: 2017

REACTIONS (7)
  - Instillation site reaction [Not Recovered/Not Resolved]
  - Dysgeusia [Not Recovered/Not Resolved]
  - Instillation site discharge [Not Recovered/Not Resolved]
  - Drug dose omission [Recovered/Resolved]
  - Therapeutic response unexpected [Not Recovered/Not Resolved]
  - Instillation site pain [Not Recovered/Not Resolved]
  - Headache [Not Recovered/Not Resolved]

NARRATIVE: CASE EVENT DATE: 2017
